FAERS Safety Report 25656208 (Version 1)
Quarter: 2025Q3

REPORT INFORMATION
  Report Type: Spontaneous
  Country: EU (occurrence: EU)
  Receive Date: 20250807
  Receipt Date: 20250807
  Transmission Date: 20251021
  Serious: Yes (Other)
  Sender: Kenvue
  Company Number: None

PATIENT

DRUGS (2)
  1. IBUPROFEN [Interacting]
     Active Substance: IBUPROFEN
     Indication: Back pain
     Route: 048
     Dates: start: 202506
  2. DROSPIRENONE AND ESTETROL [Interacting]
     Active Substance: DROSPIRENONE\ESTETROL MONOHYDRATE
     Indication: Oral contraception
     Dosage: UNK UNK, ONCE A DAY 1 PER DAY AT THE SAME TIME
     Route: 048
     Dates: start: 20230622

REACTIONS (5)
  - Dizziness [Recovered/Resolved]
  - Arrhythmia [Recovered/Resolved]
  - Headache [Recovered/Resolved]
  - Malaise [Recovered/Resolved]
  - Hypotension [Recovered/Resolved]

NARRATIVE: CASE EVENT DATE: 20250601
